FAERS Safety Report 10640377 (Version 1)
Quarter: 2014Q4

REPORT INFORMATION
  Report Type: Spontaneous
  Country: CN (occurrence: None)
  Receive Date: 20141205
  Receipt Date: 20141205
  Transmission Date: 20150529
  Serious: Yes (Disabling)
  Sender: FDA-Public Use
  Company Number: CN-017877

PATIENT
  Sex: Female

DRUGS (1)
  1. PROPESS [Suspect]
     Active Substance: DINOPROSTONE
     Indication: INDUCTION OF CERVIX RIPENING
     Dosage: (10 MG VAGINAL)
     Route: 067
     Dates: start: 20140725, end: 20140725

REACTIONS (3)
  - Postpartum haemorrhage [None]
  - Disseminated intravascular coagulation [None]
  - Anaphylactoid syndrome of pregnancy [None]

NARRATIVE: CASE EVENT DATE: 20140725
